FAERS Safety Report 20353224 (Version 1)
Quarter: 2022Q1

REPORT INFORMATION
  Report Type: Spontaneous
  Country: US (occurrence: US)
  Receive Date: 20220119
  Receipt Date: 20220119
  Transmission Date: 20220423
  Serious: Yes (Other)
  Sender: FDA-Public Use
  Company Number: US-PFIZER INC-202101103937

PATIENT
  Age: 66 Year
  Sex: Female
  Weight: 62.268 kg

DRUGS (7)
  1. IBRANCE [Suspect]
     Active Substance: PALBOCICLIB
     Indication: Breast cancer female
     Dosage: 100 MG, DAILY
     Route: 048
     Dates: start: 20210726
  2. IBRANCE [Suspect]
     Active Substance: PALBOCICLIB
     Dosage: 125 MG, CYCLIC (DAILY FOR 21 DAYS ON, THEN 7 DAYS OFF)
     Route: 048
     Dates: start: 20210720
  3. GABAPENTIN [Concomitant]
     Active Substance: GABAPENTIN
     Dosage: 100 MG
  4. ZOMETA [Concomitant]
     Active Substance: ZOLEDRONIC ACID
  5. FASLODEX [Concomitant]
     Active Substance: FULVESTRANT
  6. VITAMIN D NOS [Concomitant]
     Active Substance: VITAMIN D NOS
  7. ASPIRIN [Concomitant]
     Active Substance: ASPIRIN

REACTIONS (5)
  - Renal impairment [Unknown]
  - Bell^s palsy [Unknown]
  - White blood cell count decreased [Unknown]
  - Eye disorder [Unknown]
  - Pain [Unknown]
